FAERS Safety Report 23030280 (Version 4)
Quarter: 2024Q1

REPORT INFORMATION
  Report Type: Spontaneous
  Country: FR (occurrence: FR)
  Receive Date: 20231005
  Receipt Date: 20240119
  Transmission Date: 20240409
  Serious: Yes (Hospitalization, Other)
  Sender: FDA-Public Use
  Company Number: FR-AUROBINDO-AUR-APL-2023-061593

PATIENT
  Age: 29 Year
  Sex: Female

DRUGS (6)
  1. CLARITHROMYCIN [Interacting]
     Active Substance: CLARITHROMYCIN
     Indication: Infection
     Dosage: 500 MILLIGRAM, ONCE A DAY
     Route: 065
     Dates: start: 202012
  2. MOXIFLOXACIN [Suspect]
     Active Substance: MOXIFLOXACIN
     Indication: Infection
     Dosage: 400 MILLIGRAM, ONCE A DAY
     Route: 065
     Dates: start: 202012
  3. ETHAMBUTOL [Suspect]
     Active Substance: ETHAMBUTOL HYDROCHLORIDE
     Indication: Infection
     Dosage: 500 MILLIGRAM, ONCE A DAY
     Route: 065
     Dates: start: 202012
  4. FLUTICASONE PROPIONATE [Interacting]
     Active Substance: FLUTICASONE PROPIONATE
     Indication: Asthma
     Dosage: UNK, TWO TIMES A DAY
  5. SPORANOX [Interacting]
     Active Substance: ITRACONAZOLE
     Indication: Bronchopulmonary aspergillosis
     Dosage: 200 MILLIGRAM, ONCE A DAY
     Route: 065
     Dates: start: 202011, end: 202103
  6. SPORANOX [Interacting]
     Active Substance: ITRACONAZOLE
     Indication: Bronchopulmonary aspergillosis allergic

REACTIONS (7)
  - Pseudo Cushing^s syndrome [Recovering/Resolving]
  - Drug level increased [Recovering/Resolving]
  - Foot fracture [Unknown]
  - Stress fracture [Unknown]
  - Adrenocorticotropic hormone deficiency [Unknown]
  - Osteoporotic fracture [Unknown]
  - Drug interaction [Recovering/Resolving]

NARRATIVE: CASE EVENT DATE: 20210301
